FAERS Safety Report 23688504 (Version 1)
Quarter: 2024Q1

REPORT INFORMATION
  Report Type: Spontaneous
  Country: US (occurrence: US)
  Receive Date: 20240329
  Receipt Date: 20240329
  Transmission Date: 20240409
  Serious: No
  Sender: FDA-Public Use
  Company Number: US-INSUD PHARMA-2403US02524

PATIENT

DRUGS (1)
  1. SLYND [Suspect]
     Active Substance: DROSPIRENONE
     Indication: Oral contraception
     Dosage: UNK
     Route: 048
     Dates: start: 2023, end: 2024

REACTIONS (2)
  - Acne [Recovering/Resolving]
  - Alopecia [Recovering/Resolving]

NARRATIVE: CASE EVENT DATE: 20230101
